FAERS Safety Report 25983322 (Version 1)
Quarter: 2025Q4

REPORT INFORMATION
  Report Type: Spontaneous
  Country: RU (occurrence: RU)
  Receive Date: 20251031
  Receipt Date: 20251031
  Transmission Date: 20260117
  Serious: Yes (Other)
  Sender: ROCHE
  Company Number: RU-ROCHE-10000372761

PATIENT
  Age: 59 Year
  Sex: Female

DRUGS (3)
  1. OCREVUS [Suspect]
     Active Substance: OCRELIZUMAB
     Indication: Multiple sclerosis
     Route: 042
     Dates: start: 20250805
  2. OCREVUS [Suspect]
     Active Substance: OCRELIZUMAB
     Route: 042
     Dates: start: 20250819
  3. THIOLEPTA [Concomitant]

REACTIONS (9)
  - Urinary incontinence [Unknown]
  - Abdominal tenderness [Unknown]
  - Muscle spasms [Unknown]
  - Body temperature increased [Unknown]
  - Blood glucose increased [Unknown]
  - Genitourinary tract infection [Unknown]
  - White blood cell count increased [Unknown]
  - Abdominal discomfort [Unknown]
  - Chills [Unknown]
